FAERS Safety Report 7607822-4 (Version None)
Quarter: 2011Q3

REPORT INFORMATION
  Report Type: 
  Country: None (occurrence: None)
  Receive Date: 20110714
  Receipt Date: 20110707
  Transmission Date: 20111222
  Serious: Yes (Hospitalization)
  Sender: FDA-Public Use
  Company Number: US-BIOGENIDEC-2011BI006096

PATIENT
  Age: 59 Year
  Sex: Female
  Weight: 60 kg

DRUGS (1)
  1. TYSABRI [Suspect]
     Indication: MULTIPLE SCLEROSIS
     Route: 042
     Dates: start: 20090901

REACTIONS (11)
  - HAEMATOMA [None]
  - ANKLE FRACTURE [None]
  - ROAD TRAFFIC ACCIDENT [None]
  - CONCUSSION [None]
  - MUSCULOSKELETAL STIFFNESS [None]
  - HYPOTENSION [None]
  - DERMATITIS CONTACT [None]
  - URINARY TRACT INFECTION [None]
  - CEREBRAL HAEMORRHAGE [None]
  - TENDON PAIN [None]
  - INSOMNIA [None]
